FAERS Safety Report 7292581-8 (Version None)
Quarter: 2011Q1

REPORT INFORMATION
  Report Type: 
  Country: None (occurrence: None)
  Receive Date: 20110215
  Receipt Date: 20110215
  Transmission Date: 20110831
  Serious: Yes (Death)
  Sender: FDA-Public Use
  Company Number: None

PATIENT
  Age: 49 Year
  Sex: Male
  Weight: 132.9039 kg

DRUGS (1)
  1. TRIAD ALCOHOL SWABS TRIAD [Suspect]
     Indication: THERAPEUTIC PROCEDURE
     Dosage: WAS ON FLOLAN IV THERAPY, USED ALCOHOL PADS WIHT THAT THERAPY

REACTIONS (6)
  - PYREXIA [None]
  - DYSPNOEA [None]
  - PRODUCT QUALITY ISSUE [None]
  - INCOHERENT [None]
  - COUGH [None]
  - FATIGUE [None]
